FAERS Safety Report 18691370 (Version 1)
Quarter: 2021Q1

REPORT INFORMATION
  Report Type: Report from Study
  Country: IT (occurrence: IT)
  Receive Date: 20210101
  Receipt Date: 20210101
  Transmission Date: 20210419
  Serious: Yes (Life-Threatening, Hospitalization, Other)
  Sender: FDA-Public Use
  Company Number: IT-AMGEN-ITACT2020211632

PATIENT
  Age: 67 Year
  Sex: Female
  Weight: 52 kg

DRUGS (8)
  1. CALCIUM LEVOFOLINATE [Suspect]
     Active Substance: LEVOLEUCOVORIN CALCIUM
     Dosage: 310 MILLIGRAM
     Route: 042
  2. PANITUMUMAB [Suspect]
     Active Substance: PANITUMUMAB
     Indication: COLORECTAL CANCER
     Dosage: 318 MILLIGRAM
     Route: 042
     Dates: start: 20191007
  3. 5 FU [Suspect]
     Active Substance: FLUOROURACIL
     Dosage: 3720 MILLIGRAM
     Route: 042
  4. CALCIUM LEVOFOLINATE [Suspect]
     Active Substance: LEVOLEUCOVORIN CALCIUM
     Indication: COLORECTAL CANCER
     Dosage: 314 MILLIGRAM
     Route: 042
     Dates: start: 20191007
  5. PANITUMUMAB [Suspect]
     Active Substance: PANITUMUMAB
     Dosage: 249.60 MILLIGRAM
     Route: 042
  6. 5 FU [Suspect]
     Active Substance: FLUOROURACIL
     Dosage: 620 MILLIGRAM
     Route: 040
  7. 5 FU [Suspect]
     Active Substance: FLUOROURACIL
     Indication: COLORECTAL CANCER
     Dosage: 3768 MILLIGRAM
     Route: 042
     Dates: start: 20191007
  8. 5 FU [Suspect]
     Active Substance: FLUOROURACIL
     Dosage: 628 MILLIGRAM
     Route: 040
     Dates: start: 20191104

REACTIONS (1)
  - Sepsis [Not Recovered/Not Resolved]

NARRATIVE: CASE EVENT DATE: 20201218
